FAERS Safety Report 14129069 (Version 2)
Quarter: 2018Q2

REPORT INFORMATION
  Report Type: Spontaneous
  Country: IT (occurrence: IT)
  Receive Date: 20171026
  Receipt Date: 20180508
  Transmission Date: 20180711
  Serious: Yes (Other)
  Sender: FDA-Public Use
  Company Number: IT-MYLANLABS-2017M1066220

PATIENT
  Sex: Female

DRUGS (1)
  1. BACLOFENE MYLAN GENERICS 25 MG COMPRESSE [Suspect]
     Active Substance: BACLOFEN
     Indication: QUADRIPARESIS
     Dosage: 50 MG DAILY
     Route: 048
     Dates: start: 2015

REACTIONS (2)
  - Product substitution issue [Unknown]
  - Drug effect decreased [Unknown]

NARRATIVE: CASE EVENT DATE: 2015
